FAERS Safety Report 7400156-2 (Version None)
Quarter: 2011Q2

REPORT INFORMATION
  Report Type: 
  Country: None (occurrence: None)
  Receive Date: 20110405
  Receipt Date: 20110405
  Transmission Date: 20111010
  Serious: Yes (Other)
  Sender: FDA-Public Use
  Company Number: None

PATIENT
  Age: 51 Year
  Sex: Male
  Weight: 92.9874 kg

DRUGS (3)
  1. AVELOX [Suspect]
     Indication: EAR INFECTION
     Dosage: 1 PER DAY PO
     Route: 048
     Dates: start: 20110325, end: 20110328
  2. AVELOX [Suspect]
     Indication: SINUSITIS
     Dosage: 1 PER DAY PO
     Route: 048
     Dates: start: 20110325, end: 20110328
  3. AVELOX [Suspect]
     Indication: BRONCHITIS
     Dosage: 1 PER DAY PO
     Route: 048
     Dates: start: 20110325, end: 20110328

REACTIONS (9)
  - SOMNOLENCE [None]
  - GASTRIC PH INCREASED [None]
  - CONDITION AGGRAVATED [None]
  - MALAISE [None]
  - SINUSITIS [None]
  - PRODUCT COUNTERFEIT [None]
  - PARAESTHESIA [None]
  - ASTHMA [None]
  - BRONCHITIS [None]
